FAERS Safety Report 6909238-2 (Version None)
Quarter: 2010Q3

REPORT INFORMATION
  Report Type: 
  Country: None (occurrence: None)
  Receive Date: 20100805
  Receipt Date: 20100728
  Transmission Date: 20110219
  Serious: Yes (Hospitalization)
  Sender: FDA-Public Use
  Company Number: US-SANOFI-AVENTIS-2010SA045131

PATIENT

DRUGS (1)
  1. LANTUS [Suspect]
     Dosage: EVERY 4 DAYS DOSE:20 UNIT(S)
     Route: 058

REACTIONS (3)
  - BLOOD GLUCOSE DECREASED [None]
  - GLYCOSYLATED HAEMOGLOBIN INCREASED [None]
  - HOSPITALISATION [None]
